FAERS Safety Report 21035602 (Version 2)
Quarter: 2022Q3

REPORT INFORMATION
  Report Type: Spontaneous
  Country: US (occurrence: US)
  Receive Date: 20220701
  Receipt Date: 20220701
  Transmission Date: 20221026
  Serious: Yes (Hospitalization, Other)
  Sender: FDA-Public Use
  Company Number: US-NOVITIUMPHARMA-2022USNVP00092

PATIENT
  Age: 65 Year
  Sex: Male

DRUGS (5)
  1. ACYCLOVIR [Suspect]
     Active Substance: ACYCLOVIR
     Indication: Herpes simplex
     Route: 042
  2. PREDNISONE [Suspect]
     Active Substance: PREDNISONE
     Indication: Product used for unknown indication
  3. Cabozantinib plus nivolumab combination therapy [Concomitant]
     Indication: Metastatic renal cell carcinoma
  4. VALACYCLOVIR [Concomitant]
     Active Substance: VALACYCLOVIR HYDROCHLORIDE
     Indication: Herpes simplex
  5. Sulfmethoxazole Trimethoprim [Concomitant]
     Indication: Pneumonitis

REACTIONS (2)
  - Papule [Unknown]
  - Acute kidney injury [Recovering/Resolving]
